FAERS Safety Report 12935458 (Version 1)
Quarter: 2016Q4

REPORT INFORMATION
  Report Type: Spontaneous
  Country: US (occurrence: US)
  Receive Date: 20161114
  Receipt Date: 20161114
  Transmission Date: 20170207
  Serious: No
  Sender: FDA-Public Use
  Company Number: US-JAZZ-2016-US-016851

PATIENT
  Age: 49 Year
  Sex: Female

DRUGS (10)
  1. ESTRADIOL. [Concomitant]
     Active Substance: ESTRADIOL
  2. SYNTHROID [Concomitant]
     Active Substance: LEVOTHYROXINE SODIUM
  3. LAMOTRIGINE. [Concomitant]
     Active Substance: LAMOTRIGINE
  4. VITAMIN B12 [Concomitant]
     Active Substance: CYANOCOBALAMIN
  5. VITAMIN D3 [Concomitant]
     Active Substance: CHOLECALCIFEROL
  6. XYREM [Suspect]
     Active Substance: SODIUM OXYBATE
     Indication: NARCOLEPSY
     Dosage: 2.25 G, BID
     Route: 048
     Dates: start: 201608
  7. XANAX [Concomitant]
     Active Substance: ALPRAZOLAM
  8. XYREM [Suspect]
     Active Substance: SODIUM OXYBATE
     Indication: CATAPLEXY
  9. REMERON [Suspect]
     Active Substance: MIRTAZAPINE
     Indication: PRODUCT USED FOR UNKNOWN INDICATION
  10. MODAFINIL. [Concomitant]
     Active Substance: MODAFINIL

REACTIONS (13)
  - Anger [Unknown]
  - Vulvovaginal discomfort [Unknown]
  - Sluggishness [Unknown]
  - Nasopharyngitis [Not Recovered/Not Resolved]
  - Choking sensation [Unknown]
  - Memory impairment [Unknown]
  - Limb discomfort [Not Recovered/Not Resolved]
  - Insomnia [Unknown]
  - Intentional product use issue [Unknown]
  - Contusion [Unknown]
  - Tooth disorder [Unknown]
  - Fall [Recovered/Resolved]
  - Drug ineffective [Unknown]

NARRATIVE: CASE EVENT DATE: 20160830
